FAERS Safety Report 9216488 (Version 1)
Quarter: 2013Q2

REPORT INFORMATION
  Report Type: Spontaneous
  Country: US (occurrence: US)
  Receive Date: 20130408
  Receipt Date: 20130408
  Transmission Date: 20140414
  Serious: Yes (Death)
  Sender: FDA-Public Use
  Company Number: US-BRISTOL-MYERS SQUIBB COMPANY-18731695

PATIENT
  Age: 69 Year
  Sex: Male

DRUGS (6)
  1. SPRYCEL [Suspect]
     Indication: ACUTE LYMPHOCYTIC LEUKAEMIA
     Dosage: TABS
     Route: 048
     Dates: start: 20130213
  2. ALLOPURINOL [Concomitant]
  3. ATENOLOL [Concomitant]
  4. CIPRO [Concomitant]
  5. PREDNISONE [Concomitant]
  6. ZOFRAN [Concomitant]

REACTIONS (1)
  - Death [Fatal]
